FAERS Safety Report 9631244 (Version 2)
Quarter: 2013Q4

REPORT INFORMATION
  Report Type: Spontaneous
  Country: GB (occurrence: None)
  Receive Date: 20131016
  Receipt Date: 20131025
  Transmission Date: 20140711
  Serious: Yes (Hospitalization, Other)
  Sender: FDA-Public Use
  Company Number: FK201304593

PATIENT
  Age: 61 Year
  Sex: Male
  Weight: 91.2 kg

DRUGS (7)
  1. GEMCITABINE (MANUFACTURER UNKNOWN) (GEMCITABINE) (GEMCITABINE) [Suspect]
     Indication: PANCREATIC CARCINOMA
     Dosage: NOT OTHERWISE SPECIFIED.
     Route: 042
     Dates: start: 20130830, end: 20130906
  2. INDOMETHACIN [Concomitant]
  3. ALLOPURINOL [Concomitant]
  4. AMITRIPTYLINE [Concomitant]
  5. CREON [Concomitant]
  6. LANSOPRAZOLE [Concomitant]
  7. PARACETAMOL [Concomitant]

REACTIONS (9)
  - Biliary dilatation [None]
  - Liver function test abnormal [None]
  - Malaise [None]
  - Alanine aminotransferase increased [None]
  - Blood alkaline phosphatase increased [None]
  - Aspartate aminotransferase increased [None]
  - Blood bilirubin increased [None]
  - C-reactive protein increased [None]
  - Gamma-glutamyltransferase increased [None]
